FAERS Safety Report 5616578-6 (Version None)
Quarter: 2008Q1

REPORT INFORMATION
  Report Type: 
  Country: None (occurrence: None)
  Receive Date: 20080207
  Receipt Date: 20070807
  Transmission Date: 20080703
  Serious: No
  Sender: FDA-Public Use
  Company Number: A0668678A

PATIENT
  Sex: Female

DRUGS (5)
  1. PAXIL CR [Suspect]
     Indication: DEPRESSION
     Dosage: 12.5MG PER DAY
     Route: 048
  2. ZYRTEC [Concomitant]
  3. UNKNOWN MEDICATION [Concomitant]
  4. PREMARIN [Concomitant]
  5. PAROXETINE [Concomitant]

REACTIONS (1)
  - DRUG INEFFECTIVE [None]
